FAERS Safety Report 6726748-1 (Version None)
Quarter: 2010Q2

REPORT INFORMATION
  Report Type: 
  Country: None (occurrence: None)
  Receive Date: 20100515
  Receipt Date: 20100506
  Transmission Date: 20101027
  Serious: Yes (Hospitalization)
  Sender: FDA-Public Use
  Company Number: DE-JNJFOC-20100302552

PATIENT
  Age: 67 Year
  Sex: Male

DRUGS (3)
  1. TAVANIC [Suspect]
     Indication: PNEUMONIA
     Route: 048
  2. ROCEPHIN [Concomitant]
     Indication: PNEUMONIA
     Route: 042
  3. AMPICILLIN SODIUM/SULBACTAM SODIUM [Concomitant]
     Indication: PNEUMONIA
     Route: 042

REACTIONS (2)
  - ANGIOEDEMA [None]
  - COMA [None]
